FAERS Safety Report 7048137-5 (Version None)
Quarter: 2010Q4

REPORT INFORMATION
  Report Type: 
  Country: None (occurrence: None)
  Receive Date: 20101015
  Receipt Date: 20101013
  Transmission Date: 20110411
  Serious: Yes (Death)
  Sender: FDA-Public Use
  Company Number: FR-CEPHALON-2010005348

PATIENT
  Sex: Female
  Weight: 78 kg

DRUGS (7)
  1. EFFENTORA [Suspect]
     Indication: BREAKTHROUGH PAIN
     Route: 002
     Dates: start: 20100701
  2. EFFENTORA [Suspect]
     Route: 002
  3. DURAGESIC-100 [Suspect]
     Indication: CANCER PAIN
     Route: 062
  4. DURAGESIC-100 [Suspect]
     Route: 062
  5. DURAGESIC-100 [Suspect]
     Route: 062
     Dates: start: 20100601, end: 20100610
  6. TRAMADOL HCL [Suspect]
  7. IXPRIM [Concomitant]

REACTIONS (2)
  - DRUG PRESCRIBING ERROR [None]
  - LUNG CANCER METASTATIC [None]
